FAERS Safety Report 7895560-2 (Version None)
Quarter: 2011Q4

REPORT INFORMATION
  Report Type: 
  Country: None (occurrence: None)
  Receive Date: 20111106
  Receipt Date: 20110829
  Transmission Date: 20120403
  Serious: No
  Sender: FDA-Public Use
  Company Number: US-AMGEN-USASP2011044137

PATIENT
  Age: 48 Year
  Sex: Female
  Weight: 70 kg

DRUGS (6)
  1. TUMS                               /00108001/ [Concomitant]
     Dosage: 500 MG, UNK
  2. ZOLOFT [Concomitant]
     Dosage: 50 MG, UNK
  3. PRILOSEC [Concomitant]
     Dosage: 20 MG, UNK
  4. ENBREL [Suspect]
     Indication: PSORIATIC ARTHROPATHY
     Dosage: 50 MG, QWK
  5. ULTRAVATE                          /00008504/ [Concomitant]
     Dosage: 0.05 %, UNK
  6. METHOTREXATE [Concomitant]
     Dosage: 1 G, UNK

REACTIONS (4)
  - PALLOR [None]
  - INJECTION SITE ERYTHEMA [None]
  - FATIGUE [None]
  - INJECTION SITE RASH [None]
